FAERS Safety Report 20807457 (Version 2)
Quarter: 2022Q3

REPORT INFORMATION
  Report Type: Spontaneous
  Country: US (occurrence: US)
  Receive Date: 20220510
  Receipt Date: 20220830
  Transmission Date: 20221027
  Serious: Yes (Death, Hospitalization, Other)
  Sender: FDA-Public Use
  Company Number: US-AMGEN-USASP2022076165

PATIENT
  Sex: Female
  Weight: 4.58 kg

DRUGS (5)
  1. IVABRADINE [Suspect]
     Active Substance: IVABRADINE
     Indication: Atrial tachycardia
     Dosage: 0.1 MILLIGRAM/KILOGRAM, BID
     Route: 065
  2. IVABRADINE [Suspect]
     Active Substance: IVABRADINE
     Indication: Off label use
     Dosage: 5 MILLIGRAM 5 ML WATER, THEN 0.5 ML ADMINISTERED
  3. PROCAINAMIDE HYDROCHLORIDE [Concomitant]
     Active Substance: PROCAINAMIDE HYDROCHLORIDE
     Indication: Atrial tachycardia
     Dosage: 15 MILLIGRAM/KILOGRAM BOLUS
     Route: 065
  4. PROCAINAMIDE HYDROCHLORIDE [Concomitant]
     Active Substance: PROCAINAMIDE HYDROCHLORIDE
     Dosage: 40 UNK CG/KG/MIN
     Route: 065
  5. ESMOLOL [Concomitant]
     Active Substance: ESMOLOL HYDROCHLORIDE
     Indication: Atrial tachycardia
     Dosage: UNK 250 MCG/KG/MIN
     Route: 065

REACTIONS (15)
  - Death [Fatal]
  - Ascites [Unknown]
  - Heart valve incompetence [Unknown]
  - Atrial pressure increased [Unknown]
  - Electrolyte imbalance [Unknown]
  - Protein total decreased [Unknown]
  - Hypogammaglobulinaemia [Unknown]
  - Coagulopathy [Unknown]
  - Superior vena cava occlusion [Unknown]
  - Atrial tachycardia [Unknown]
  - Sinus bradycardia [Unknown]
  - Supraventricular extrasystoles [Unknown]
  - Therapeutic product effect decreased [Unknown]
  - Wrong technique in product usage process [Unknown]
  - Off label use [Unknown]
